FAERS Safety Report 6258162-X (Version None)
Quarter: 2009Q3

REPORT INFORMATION
  Report Type: 
  Country: None (occurrence: None)
  Receive Date: 20090707
  Receipt Date: 20090626
  Transmission Date: 20100115
  Serious: Yes (Hospitalization)
  Sender: FDA-Public Use
  Company Number: FR-BAYER-200924448GPV

PATIENT
  Age: 48 Year
  Sex: Male

DRUGS (4)
  1. CIFLOX [Suspect]
     Indication: ARTHRITIS BACTERIAL
     Route: 042
     Dates: start: 20090514, end: 20090525
  2. VANCOMYCIN SANDOZ [Suspect]
     Indication: ARTHRITIS BACTERIAL
     Dosage: UNIT DOSE: 1 G
     Route: 042
     Dates: start: 20090514, end: 20090525
  3. TAZOCILLINE [Suspect]
     Indication: ARTHRITIS BACTERIAL
     Route: 042
     Dates: start: 20090514, end: 20090525
  4. FUCIDINE CAP [Suspect]
     Indication: ARTHRITIS BACTERIAL
     Route: 042
     Dates: start: 20090514, end: 20090525

REACTIONS (9)
  - AGRANULOCYTOSIS [None]
  - CARDIOMYOPATHY [None]
  - DRUG RASH WITH EOSINOPHILIA AND SYSTEMIC SYMPTOMS [None]
  - FLUSHING [None]
  - INFLAMMATION [None]
  - LIVER DISORDER [None]
  - RASH [None]
  - RASH GENERALISED [None]
  - TACHYCARDIA [None]
